FAERS Safety Report 22272935 (Version 1)
Quarter: 2023Q2

REPORT INFORMATION
  Report Type: Spontaneous
  Country: US (occurrence: US)
  Receive Date: 20230502
  Receipt Date: 20230502
  Transmission Date: 20230721
  Serious: Yes (Other)
  Sender: FDA-Public Use
  Company Number: US-MYLANLABS-2023M1045243

PATIENT
  Age: 57 Year
  Sex: Female

DRUGS (10)
  1. TRIAMCINOLONE [Suspect]
     Active Substance: TRIAMCINOLONE
     Indication: Granuloma annulare
     Dosage: UNK, BIWEEKLY
     Route: 061
  2. MINOCYCLINE [Suspect]
     Active Substance: MINOCYCLINE HYDROCHLORIDE
     Indication: Granuloma annulare
     Dosage: 100 MILLIGRAM, MONTHLY (ROM [RIFAMPIN, OFLOXACIN, AND MINOCYCLINE] THERAPY) IN A SINGLE ORAL DOSE ON
     Route: 048
  3. TRIAMCINOLONE [Suspect]
     Active Substance: TRIAMCINOLONE
     Indication: Granuloma annulare
     Dosage: UNK, 2.5MG/CC INJECTIONS
     Route: 026
  4. METHOTREXATE [Suspect]
     Active Substance: METHOTREXATE
     Indication: Rheumatoid arthritis
     Dosage: UNK
     Route: 065
  5. CLOBETASOL [Suspect]
     Active Substance: CLOBETASOL
     Indication: Granuloma annulare
     Dosage: UNK, BID, TWICE A DAY 5 TIMES WEEKLY
     Route: 061
  6. RIFAMPIN [Suspect]
     Active Substance: RIFAMPIN
     Indication: Granuloma annulare
     Dosage: 600 MILLIGRAM, MONTHLY (ROM [RIFAMPIN, OFLOXACIN, AND MINOCYCLINE] THERAPY) IN A SINGLE ORAL DOSE ON
     Route: 048
  7. OFLOXACIN [Suspect]
     Active Substance: OFLOXACIN
     Indication: Granuloma annulare
     Dosage: 400 MILLIGRAM, MONTHLY (ROM [RIFAMPIN, OFLOXACIN, AND MINOCYCLINE] THERAPY) IN A SINGLE ORAL DOSE ON
     Route: 048
  8. RUXOLITINIB [Suspect]
     Active Substance: RUXOLITINIB
     Indication: Granuloma annulare
     Dosage: UNK, BID (TWICE A DAY FOR 6 WEEKS)
     Route: 061
  9. ETANERCEPT [Suspect]
     Active Substance: ETANERCEPT
     Indication: Rheumatoid arthritis
     Dosage: UNK
     Route: 065
  10. CLOTRIMAZOLE [Concomitant]
     Active Substance: CLOTRIMAZOLE
     Indication: Product used for unknown indication
     Dosage: UNK
     Route: 061

REACTIONS (2)
  - Granuloma annulare [Recovered/Resolved]
  - Drug ineffective [Unknown]
